FAERS Safety Report 21811898 (Version 1)
Quarter: 2023Q1

REPORT INFORMATION
  Report Type: Report from Study
  Country: US (occurrence: None)
  Receive Date: 20230103
  Receipt Date: 20230103
  Transmission Date: 20230417
  Serious: Yes (Death, Other)
  Sender: FDA-Public Use
  Company Number: 2023A000078

PATIENT
  Age: 21874 Day
  Sex: Female

DRUGS (1)
  1. TAGRISSO [Suspect]
     Active Substance: OSIMERTINIB
     Indication: Lung carcinoma cell type unspecified stage 0
     Dosage: TAKE 1 TABLET (40MG) BY MOUTH ONCE DAILY ALTERNATING WITH 2 TABLETS (80 MG) ONCE DAILY EVERY OTHE...
     Route: 048
     Dates: start: 20221104

REACTIONS (1)
  - Death [Fatal]

NARRATIVE: CASE EVENT DATE: 20221228
